FAERS Safety Report 10650252 (Version 2)
Quarter: 2014Q4

REPORT INFORMATION
  Report Type: Spontaneous
  Country: JP (occurrence: JP)
  Receive Date: 20141212
  Receipt Date: 20141212
  Transmission Date: 20150529
  Serious: Yes (Hospitalization, Other)
  Sender: FDA-Public Use
  Company Number: JP-GLAXOSMITHKLINE-B0862447A

PATIENT
  Age: 28 Year
  Sex: Female

DRUGS (4)
  1. DEPAS [Concomitant]
     Active Substance: ETIZOLAM
     Indication: DEPRESSION
     Dosage: 1 MG, UNK
     Route: 048
  2. LAMOTRIGINE. [Suspect]
     Active Substance: LAMOTRIGINE
     Indication: BIPOLAR DISORDER
     Route: 048
     Dates: start: 20120508, end: 20120521
  3. LAMOTRIGINE. [Suspect]
     Active Substance: LAMOTRIGINE
     Dosage: 50 MG, QD
     Route: 048
     Dates: start: 20120522
  4. PAROXETINE HYDROCHLORIDE HYDRATE [Concomitant]
     Indication: DEPRESSION
     Dosage: 30 MG, UNK
     Route: 048

REACTIONS (8)
  - Pyrexia [Recovering/Resolving]
  - Erythema [Recovering/Resolving]
  - Drug reaction with eosinophilia and systemic symptoms [Recovering/Resolving]
  - Papule [Recovering/Resolving]
  - Rash pustular [Recovering/Resolving]
  - Scab [Recovering/Resolving]
  - Drug eruption [Recovered/Resolved]
  - Rash [Recovering/Resolving]

NARRATIVE: CASE EVENT DATE: 201206
